FAERS Safety Report 4663366-3 (Version None)
Quarter: 2005Q2

REPORT INFORMATION
  Report Type: 
  Country: None (occurrence: None)
  Receive Date: 20050513
  Receipt Date: 20050505
  Transmission Date: 20051028
  Serious: Yes (Hospitalization, Other)
  Sender: FDA-Public Use
  Company Number: 2005071815

PATIENT
  Age: 65 Year
  Sex: Male

DRUGS (3)
  1. ACCUPRIL [Suspect]
     Indication: HYPERTENSION
     Dosage: 20 MG (20 MG, SINGLE INTERVAL:  EVERYDAY), ORAL
     Route: 048
     Dates: start: 20040601
  2. WARFARIN SODIUM [Suspect]
     Indication: ILL-DEFINED DISORDER
     Dosage: ORAL
     Route: 048
     Dates: start: 20050401
  3. METHADONE HCL [Concomitant]

REACTIONS (12)
  - DISLOCATION OF JOINT PROSTHESIS [None]
  - ENDOSCOPY [None]
  - ERYTHEMA [None]
  - LOCALISED INFECTION [None]
  - MEDICAL DEVICE COMPLICATION [None]
  - OEDEMA PERIPHERAL [None]
  - PHARYNGITIS [None]
  - SKIN HAEMORRHAGE [None]
  - SPEECH DISORDER [None]
  - STREPTOCOCCAL INFECTION [None]
  - THROMBOSIS [None]
  - UPPER RESPIRATORY TRACT INFLAMMATION [None]
